FAERS Safety Report 7769313-X (Version None)
Quarter: 2011Q3

REPORT INFORMATION
  Report Type: 
  Country: None (occurrence: None)
  Receive Date: 20110922
  Receipt Date: 20110707
  Transmission Date: 20111222
  Serious: No
  Sender: FDA-Public Use
  Company Number: US-ASTRAZENECA-2011SE40287

PATIENT
  Age: 33 Year
  Sex: Male

DRUGS (1)
  1. SEROQUEL [Suspect]
     Route: 048

REACTIONS (8)
  - CHEST DISCOMFORT [None]
  - DRUG DOSE OMISSION [None]
  - HEADACHE [None]
  - STRESS [None]
  - FEELING ABNORMAL [None]
  - ANXIETY [None]
  - MALAISE [None]
  - INFLUENZA LIKE ILLNESS [None]
